FAERS Safety Report 8779287 (Version 1)
Quarter: 2012Q4

REPORT INFORMATION
  Report Type: 
  Country: US (occurrence: US)
  Receive Date: 20120911
  Receipt Date: 20120911
  Transmission Date: 20130627
  Serious: Yes (Death, Hospitalization, Other)
  Sender: FDA-Public Use
  Company Number: US-ELI_LILLY_AND_COMPANY-US201209002030

PATIENT
  Age: 73 Year
  Sex: Female
  Weight: 53.52 kg

DRUGS (2)
  1. ADCIRCA [Suspect]
     Indication: PULMONARY HYPERTENSION
     Dosage: UNK
     Dates: start: 20111121, end: 20120707
  2. COUMADIN [Concomitant]

REACTIONS (5)
  - Brain death [Fatal]
  - Cerebral haemorrhage [Not Recovered/Not Resolved]
  - Respiratory arrest [Recovered/Resolved]
  - Condition aggravated [Not Recovered/Not Resolved]
  - Drug interaction [Unknown]
